FAERS Safety Report 11443611 (Version 2)
Quarter: 2015Q3

REPORT INFORMATION
  Report Type: Spontaneous
  Country: US (occurrence: US)
  Receive Date: 20150901
  Receipt Date: 20150910
  Transmission Date: 20151125
  Serious: Yes (Hospitalization)
  Sender: FDA-Public Use
  Company Number: US-BAUSCH-2015PROUSA04530

PATIENT
  Age: 68 Year
  Sex: Male
  Weight: 89.44 kg

DRUGS (3)
  1. PROVENGE [Suspect]
     Active Substance: SIPULEUCEL-T
     Indication: PROSTATE CANCER METASTATIC
     Dosage: SINGLE
     Route: 042
     Dates: start: 20150417, end: 20150417
  2. PROVENGE [Suspect]
     Active Substance: SIPULEUCEL-T
     Dosage: SINGLE
     Route: 042
     Dates: start: 20150515, end: 20150515
  3. PROVENGE [Suspect]
     Active Substance: SIPULEUCEL-T
     Dosage: SINGLE
     Route: 042
     Dates: start: 20150501, end: 20150501

REACTIONS (6)
  - Depression [Unknown]
  - Constipation [Recovered/Resolved]
  - Vitamin B12 deficiency [Unknown]
  - Guillain-Barre syndrome [Not Recovered/Not Resolved]
  - Vitamin D deficiency [Unknown]
  - Anaemia [Unknown]

NARRATIVE: CASE EVENT DATE: 20150525
